FAERS Safety Report 8779219 (Version 1)
Quarter: 2012Q4

REPORT INFORMATION
  Report Type: 
  Country: US (occurrence: US)
  Receive Date: 20120911
  Receipt Date: 20120911
  Transmission Date: 20130627
  Serious: Yes (Other)
  Sender: FDA-Public Use
  Company Number: US-ELI_LILLY_AND_COMPANY-US201208002315

PATIENT
  Sex: Female
  Weight: 115.65 kg

DRUGS (2)
  1. GEMZAR [Suspect]
     Indication: OVARIAN CANCER RECURRENT
     Dosage: 1200 mg, days 1 and 8 of 21 days cycle
     Dates: start: 20120726
  2. CISPLATIN [Concomitant]
     Indication: OVARIAN CANCER

REACTIONS (4)
  - Pain [Recovered/Resolved]
  - Abdominal pain [Unknown]
  - Influenza like illness [Unknown]
  - Diarrhoea [Unknown]
